FAERS Safety Report 4623892-X (Version None)
Quarter: 2005Q1

REPORT INFORMATION
  Report Type: 
  Country: None (occurrence: None)
  Receive Date: 20050331
  Receipt Date: 20050314
  Transmission Date: 20050727
  Serious: Yes (Disabling, Other)
  Sender: FDA-Public Use
  Company Number: US-MERCK-0503USA02312

PATIENT
  Age: 81 Year
  Sex: Female
  Weight: 84 kg

DRUGS (2)
  1. FOSAMAX [Suspect]
     Indication: OSTEOPOROSIS
     Route: 048
     Dates: start: 20001101, end: 20050301
  2. MIACALCIN [Concomitant]
     Route: 065

REACTIONS (1)
  - EXOSTOSIS [None]
